FAERS Safety Report 20873105 (Version 1)
Quarter: 2022Q2

REPORT INFORMATION
  Report Type: Spontaneous
  Country: US (occurrence: None)
  Receive Date: 20220525
  Receipt Date: 20220525
  Transmission Date: 20220721
  Serious: Yes (Other)
  Sender: FDA-Public Use
  Company Number: None

PATIENT
  Age: 75 Year
  Sex: Female
  Weight: 59 kg

DRUGS (3)
  1. MOLNUPIRAVIR [Suspect]
     Active Substance: MOLNUPIRAVIR
     Indication: COVID-19
     Dosage: FREQUENCY : TWICE A DAY;?
     Route: 048
     Dates: start: 20220510, end: 20220515
  2. ATORVASTATIN [Concomitant]
     Active Substance: ATORVASTATIN
     Dosage: FREQUENCY : DAILY;?
     Dates: start: 20201024
  3. Mirtazpine 15mg daily [Concomitant]
     Dosage: FREQUENCY : DAILY;?
     Dates: start: 20160608

REACTIONS (2)
  - Rash maculo-papular [None]
  - Rash pruritic [None]

NARRATIVE: CASE EVENT DATE: 20220513
